FAERS Safety Report 15743562 (Version 6)
Quarter: 2020Q4

REPORT INFORMATION
  Report Type: Spontaneous
  Country: US (occurrence: US)
  Receive Date: 20181220
  Receipt Date: 20201126
  Transmission Date: 20210113
  Serious: No
  Sender: FDA-Public Use
  Company Number: US-PFIZER INC-2017469469

PATIENT
  Age: 80 Year
  Sex: Female
  Weight: 67.57 kg

DRUGS (2)
  1. PREMARIN [Suspect]
     Active Substance: ESTROGENS, CONJUGATED
     Indication: MENOPAUSE
     Dosage: 0.3 MG, 1X/DAY
     Route: 048
  2. PREMARIN [Suspect]
     Active Substance: ESTROGENS, CONJUGATED
     Indication: HOT FLUSH
     Dosage: 0.3 MG, ALTERNATE DAY (1 (ONE) TABLET EVERY OTHER DAY)
     Route: 048
     Dates: start: 20160617, end: 20201016

REACTIONS (11)
  - Hypoaesthesia [Unknown]
  - Off label use [Unknown]
  - Hypoacusis [Unknown]
  - Stress [Unknown]
  - Arthritis [Unknown]
  - Mobility decreased [Unknown]
  - Sensitivity to weather change [Unknown]
  - Excessive cerumen production [Unknown]
  - Dry throat [Not Recovered/Not Resolved]
  - Dysphonia [Unknown]
  - Insomnia [Unknown]

NARRATIVE: CASE EVENT DATE: 2016
